FAERS Safety Report 16202265 (Version 1)
Quarter: 2019Q2

REPORT INFORMATION
  Report Type: Spontaneous
  Country: CH (occurrence: CH)
  Receive Date: 20190416
  Receipt Date: 20190416
  Transmission Date: 20190711
  Serious: Yes (Other)
  Sender: FDA-Public Use
  Company Number: CH-BRISTOL-MYERS SQUIBB COMPANY-BMS-2019-035080

PATIENT
  Age: 74 Year
  Sex: Female

DRUGS (1)
  1. LITALIR [Suspect]
     Active Substance: HYDROXYUREA
     Indication: THROMBOCYTOSIS
     Dosage: UNAVAILABLE
     Route: 065
     Dates: start: 201712

REACTIONS (4)
  - Drug tolerance decreased [Unknown]
  - Skin disorder [Unknown]
  - Sjogren^s syndrome [Unknown]
  - Thrombocytosis [Unknown]
